FAERS Safety Report 23473047 (Version 2)
Quarter: 2024Q3

REPORT INFORMATION
  Report Type: Report from Study
  Country: IT (occurrence: IT)
  Receive Date: 20240203
  Receipt Date: 20240712
  Transmission Date: 20241016
  Serious: Yes (Death)
  Sender: ABBVIE
  Company Number: IT-JNJFOC-20240164103

PATIENT

DRUGS (3)
  1. IMBRUVICA [Suspect]
     Active Substance: IBRUTINIB
     Indication: Mantle cell lymphoma
     Route: 048
  2. VELCADE [Suspect]
     Active Substance: BORTEZOMIB
     Indication: Mantle cell lymphoma
     Route: 065
  3. BENDAMUSTINE [Suspect]
     Active Substance: BENDAMUSTINE
     Indication: Mantle cell lymphoma
     Route: 065

REACTIONS (9)
  - Thrombotic thrombocytopenic purpura [Fatal]
  - Infection [Fatal]
  - Skin cancer [Fatal]
  - COVID-19 [Fatal]
  - Cardiac failure [Fatal]
  - Acute myeloid leukaemia [Fatal]
  - Lung neoplasm malignant [Fatal]
  - Malignant melanoma [Fatal]
  - Bile duct cancer [Fatal]
